FAERS Safety Report 4598729-8 (Version None)
Quarter: 2005Q1

REPORT INFORMATION
  Report Type: 
  Country: None (occurrence: None)
  Receive Date: 20050304
  Receipt Date: 20050228
  Transmission Date: 20050727
  Serious: Yes (Hospitalization)
  Sender: FDA-Public Use
  Company Number: US-GLAXOSMITHKLINE-A0547563A

PATIENT
  Age: 50 Year
  Sex: Male

DRUGS (2)
  1. ADVAIR DISKUS 100/50 [Suspect]
     Indication: BRONCHITIS
     Dosage: 1PUFF THREE TIMES PER DAY
     Route: 055
     Dates: start: 20021001, end: 20030802
  2. STADOL [Concomitant]

REACTIONS (5)
  - IMPAIRED HEALING [None]
  - INFECTION [None]
  - INJURY [None]
  - LOWER LIMB FRACTURE [None]
  - ROAD TRAFFIC ACCIDENT [None]
